FAERS Safety Report 12464944 (Version 1)
Quarter: 2016Q2

REPORT INFORMATION
  Report Type: Spontaneous
  Country: FR (occurrence: FR)
  Receive Date: 20160614
  Receipt Date: 20160614
  Transmission Date: 20160815
  Serious: Yes (Hospitalization, Other)
  Sender: FDA-Public Use
  Company Number: FR-PFIZER INC-2016292619

PATIENT
  Age: 55 Year
  Sex: Female

DRUGS (2)
  1. SOLU-MEDROL [Suspect]
     Active Substance: METHYLPREDNISOLONE SODIUM SUCCINATE
     Indication: CENTRAL NERVOUS SYSTEM LUPUS
     Dosage: 1000 MG, 1X/DAY
     Route: 042
     Dates: start: 20160412, end: 20160412
  2. ENDOXAN /00021101/ [Suspect]
     Active Substance: CYCLOPHOSPHAMIDE
     Indication: CENTRAL NERVOUS SYSTEM LUPUS
     Dosage: 700 MG/M2, 1X/DAY
     Route: 042
     Dates: start: 20160412, end: 20160412

REACTIONS (3)
  - Pneumonia [Recovering/Resolving]
  - Lymphopenia [Recovering/Resolving]
  - Neutropenia [Recovering/Resolving]

NARRATIVE: CASE EVENT DATE: 20160422
